FAERS Safety Report 20750241 (Version 2)
Quarter: 2025Q2

REPORT INFORMATION
  Report Type: Spontaneous
  Country: CA (occurrence: CA)
  Receive Date: 20220426
  Receipt Date: 20250512
  Transmission Date: 20250717
  Serious: Yes (Other)
  Sender: MYLAN
  Company Number: CA-MYLANLABS-2022M1029431

PATIENT
  Age: 3 Year
  Sex: Female

DRUGS (36)
  1. VALPROIC ACID [Suspect]
     Active Substance: VALPROIC ACID
     Indication: Seizure
     Dosage: 40 MILLIGRAM/KILOGRAM, QD (PER DAY)
  2. VALPROIC ACID [Suspect]
     Active Substance: VALPROIC ACID
     Dosage: 40 MILLIGRAM/KILOGRAM, QD (PER DAY)
     Route: 065
  3. VALPROIC ACID [Suspect]
     Active Substance: VALPROIC ACID
     Dosage: 40 MILLIGRAM/KILOGRAM, QD (PER DAY)
     Route: 065
  4. VALPROIC ACID [Suspect]
     Active Substance: VALPROIC ACID
     Dosage: 40 MILLIGRAM/KILOGRAM, QD (PER DAY)
  5. TOPIRAMATE [Suspect]
     Active Substance: TOPIRAMATE
     Indication: Infantile spasms
     Dosage: 10 MILLIGRAM/KILOGRAM, QD (PER DAY)
  6. TOPIRAMATE [Suspect]
     Active Substance: TOPIRAMATE
     Dosage: 10 MILLIGRAM/KILOGRAM, QD (PER DAY)
     Route: 065
  7. TOPIRAMATE [Suspect]
     Active Substance: TOPIRAMATE
     Dosage: 10 MILLIGRAM/KILOGRAM, QD (PER DAY)
     Route: 065
  8. TOPIRAMATE [Suspect]
     Active Substance: TOPIRAMATE
     Dosage: 10 MILLIGRAM/KILOGRAM, QD (PER DAY)
  9. PREDNISOLONE [Suspect]
     Active Substance: PREDNISOLONE
     Indication: Infantile spasms
     Dosage: 20 MILLIGRAM, TID (3 TIMES A DAY)
  10. PREDNISOLONE [Suspect]
     Active Substance: PREDNISOLONE
     Dosage: 20 MILLIGRAM, TID (3 TIMES A DAY)
     Route: 065
  11. PREDNISOLONE [Suspect]
     Active Substance: PREDNISOLONE
     Dosage: 20 MILLIGRAM, TID (3 TIMES A DAY)
     Route: 065
  12. PREDNISOLONE [Suspect]
     Active Substance: PREDNISOLONE
     Dosage: 20 MILLIGRAM, TID (3 TIMES A DAY)
  13. CLONAZEPAM [Suspect]
     Active Substance: CLONAZEPAM
     Indication: Seizure
     Dosage: 0.16 MILLIGRAM/KILOGRAM, QD (PER DAY)
  14. CLONAZEPAM [Suspect]
     Active Substance: CLONAZEPAM
     Dosage: 0.16 MILLIGRAM/KILOGRAM, QD (PER DAY)
     Route: 065
  15. CLONAZEPAM [Suspect]
     Active Substance: CLONAZEPAM
     Dosage: 0.16 MILLIGRAM/KILOGRAM, QD (PER DAY)
     Route: 065
  16. CLONAZEPAM [Suspect]
     Active Substance: CLONAZEPAM
     Dosage: 0.16 MILLIGRAM/KILOGRAM, QD (PER DAY)
  17. LEVETIRACETAM [Suspect]
     Active Substance: LEVETIRACETAM
     Indication: Seizure
     Dosage: 79 MILLIGRAM/KILOGRAM, QD (PER DAY)
  18. LEVETIRACETAM [Suspect]
     Active Substance: LEVETIRACETAM
     Dosage: 79 MILLIGRAM/KILOGRAM, QD (PER DAY)
     Route: 065
  19. LEVETIRACETAM [Suspect]
     Active Substance: LEVETIRACETAM
     Dosage: 79 MILLIGRAM/KILOGRAM, QD (PER DAY)
     Route: 065
  20. LEVETIRACETAM [Suspect]
     Active Substance: LEVETIRACETAM
     Dosage: 79 MILLIGRAM/KILOGRAM, QD (PER DAY)
  21. PHENOBARBITAL [Suspect]
     Active Substance: PHENOBARBITAL
     Indication: Seizure
     Dosage: 5 MILLIGRAM/KILOGRAM, QD (PER DAY)
  22. PHENOBARBITAL [Suspect]
     Active Substance: PHENOBARBITAL
     Dosage: 5 MILLIGRAM/KILOGRAM, QD (PER DAY)
     Route: 065
  23. PHENOBARBITAL [Suspect]
     Active Substance: PHENOBARBITAL
     Dosage: 5 MILLIGRAM/KILOGRAM, QD (PER DAY)
     Route: 065
  24. PHENOBARBITAL [Suspect]
     Active Substance: PHENOBARBITAL
     Dosage: 5 MILLIGRAM/KILOGRAM, QD (PER DAY)
  25. CANNABIDIOL [Suspect]
     Active Substance: CANNABIDIOL
     Indication: Seizure
  26. CANNABIDIOL [Suspect]
     Active Substance: CANNABIDIOL
     Route: 065
  27. CANNABIDIOL [Suspect]
     Active Substance: CANNABIDIOL
     Route: 065
  28. CANNABIDIOL [Suspect]
     Active Substance: CANNABIDIOL
  29. VIGABATRIN [Concomitant]
     Active Substance: VIGABATRIN
     Indication: Product used for unknown indication
  30. VIGABATRIN [Concomitant]
     Active Substance: VIGABATRIN
     Route: 065
  31. VIGABATRIN [Concomitant]
     Active Substance: VIGABATRIN
     Route: 065
  32. VIGABATRIN [Concomitant]
     Active Substance: VIGABATRIN
  33. VITAMIN B6 [Concomitant]
     Active Substance: PYRIDOXINE HYDROCHLORIDE
     Indication: Product used for unknown indication
  34. VITAMIN B6 [Concomitant]
     Active Substance: PYRIDOXINE HYDROCHLORIDE
     Route: 065
  35. VITAMIN B6 [Concomitant]
     Active Substance: PYRIDOXINE HYDROCHLORIDE
     Route: 065
  36. VITAMIN B6 [Concomitant]
     Active Substance: PYRIDOXINE HYDROCHLORIDE

REACTIONS (2)
  - Seizure [Unknown]
  - Multiple-drug resistance [Unknown]
